FAERS Safety Report 9657459 (Version 3)
Quarter: 2014Q3

REPORT INFORMATION
  Report Type: Spontaneous
  Country: US (occurrence: US)
  Receive Date: 20131030
  Receipt Date: 20140814
  Transmission Date: 20150326
  Serious: Yes (Hospitalization)
  Sender: FDA-Public Use
  Company Number: US-009507513-1310USA013226

PATIENT
  Sex: Female

DRUGS (1)
  1. NUVARING [Suspect]
     Active Substance: ETHINYL ESTRADIOL\ETONOGESTREL
     Indication: CONTRACEPTION
     Dosage: UNK
     Route: 067
     Dates: start: 2006, end: 20070107

REACTIONS (9)
  - Nausea [Unknown]
  - Thrombosis [Unknown]
  - Neck pain [Unknown]
  - Constipation [Unknown]
  - Superior sagittal sinus thrombosis [Unknown]
  - Acute sinusitis [Unknown]
  - Haemoptysis [Recovered/Resolved]
  - Conjunctivitis [Unknown]
  - Escherichia urinary tract infection [Unknown]

NARRATIVE: CASE EVENT DATE: 200701
